FAERS Safety Report 8426771-5 (Version None)
Quarter: 2012Q2

REPORT INFORMATION
  Report Type: 
  Country: None (occurrence: None)
  Receive Date: 20120611
  Receipt Date: 20120604
  Transmission Date: 20120825
  Serious: Yes (Hospitalization, Other)
  Sender: FDA-Public Use
  Company Number: PHHY2012MX048994

PATIENT
  Sex: Female

DRUGS (3)
  1. RASILEZ [Suspect]
     Indication: HYPERTENSION
     Dosage: 1 DF, DAILY
  2. DIOVAN [Suspect]
     Dosage: 320 MG, DAILY
  3. DIOVAN [Suspect]
     Indication: HYPERTENSION
     Dosage: 2 TABLETS (320 MG), DAILY

REACTIONS (6)
  - RENAL FAILURE [None]
  - HEMIPLEGIA [None]
  - HYPOTONIA [None]
  - ASTHENIA [None]
  - CEREBROVASCULAR ACCIDENT [None]
  - IMPAIRED SELF-CARE [None]
